FAERS Safety Report 24732103 (Version 1)
Quarter: 2024Q4

REPORT INFORMATION
  Report Type: Spontaneous
  Country: FR (occurrence: FR)
  Receive Date: 20241213
  Receipt Date: 20241213
  Transmission Date: 20250115
  Serious: Yes (Life-Threatening)
  Sender: MYLAN
  Company Number: None

PATIENT
  Age: 38 Year
  Sex: Female
  Weight: 100 kg

DRUGS (6)
  1. DEXAMETHASONE [Suspect]
     Active Substance: DEXAMETHASONE
     Indication: Laparoscopy
     Dosage: 8 MILLIGRAM,1 TOTAL (SOLUTION FOR INJECTION IN AMPOULE)
     Route: 042
     Dates: start: 20241122, end: 20241122
  2. ROCURONIUM BROMIDE [Suspect]
     Active Substance: ROCURONIUM BROMIDE
     Indication: Laparoscopy
     Dosage: 50 MILLIGRAM,1 TOTAL (AT THE TIME OF INTUBATION)
     Route: 042
     Dates: start: 20241122, end: 20241122
  3. LIDOCAINE [Suspect]
     Active Substance: LIDOCAINE
     Indication: Laparoscopy
     Dosage: 50 MILLIGRAM,1 TOTAL
     Route: 042
     Dates: start: 20241122, end: 20241122
  4. PROPOFOL LIPURO [Suspect]
     Active Substance: PROPOFOL
     Indication: Laparoscopy
     Dosage: 300 MILLIGRAM,1 TOTAL
     Route: 042
     Dates: start: 20241122, end: 20241122
  5. SUFENTANIL [Concomitant]
     Active Substance: SUFENTANIL
     Indication: Laparoscopy
     Dosage: 200 MICROGRAM,1 TOTAL (SOLUTION FOR INJECTION, IV OR EPIDURAL)
     Route: 042
     Dates: start: 20241122, end: 20241122
  6. METFORMIN [Concomitant]
     Active Substance: METFORMIN HYDROCHLORIDE
     Dosage: UNK
     Route: 065

REACTIONS (2)
  - Anaphylactoid shock [Recovered/Resolved]
  - Circulatory collapse [Recovered/Resolved]

NARRATIVE: CASE EVENT DATE: 20241122
